FAERS Safety Report 5813952-X (Version None)
Quarter: 2008Q3

REPORT INFORMATION
  Report Type: 
  Country: None (occurrence: None)
  Receive Date: 20080717
  Receipt Date: 20080709
  Transmission Date: 20090109
  Serious: Yes (Other)
  Sender: FDA-Public Use
  Company Number: US-PFIZER INC-2008056825

PATIENT
  Sex: Female
  Weight: 57.272 kg

DRUGS (8)
  1. LIPITOR [Suspect]
     Indication: CARDIAC DISORDER
     Route: 048
  2. PLAVIX [Concomitant]
  3. PROTONIX [Concomitant]
  4. ACETYLSALICYLIC ACID SRT [Concomitant]
  5. VASOTEC [Concomitant]
     Indication: HYPERTENSION
  6. CARDIZEM [Concomitant]
     Indication: HYPERTENSION
  7. XANAX [Concomitant]
  8. SERTRALINE [Concomitant]

REACTIONS (3)
  - CATARACT [None]
  - MACULAR DEGENERATION [None]
  - PHARYNGEAL MASS [None]
